FAERS Safety Report 10371025 (Version 3)
Quarter: 2015Q1

REPORT INFORMATION
  Report Type: Spontaneous
  Country: NO (occurrence: NO)
  Receive Date: 20140808
  Receipt Date: 20150217
  Transmission Date: 20150720
  Serious: Yes (Other)
  Sender: FDA-Public Use
  Company Number: NO-IPSEN BIOPHARMACEUTICALS, INC.-2014-3807

PATIENT
  Age: 57 Year
  Sex: Female

DRUGS (6)
  1. AZZALURE [Suspect]
     Active Substance: BOTULINUM TOXIN TYPE A
     Indication: SKIN WRINKLING
  2. RESTYLANE VITAL LIDOCAINE [Suspect]
     Active Substance: HYALURONIC ACID\LIDOCAINE
     Indication: SKIN COSMETIC PROCEDURE
     Dosage: 1 ML
     Route: 065
     Dates: start: 20140711, end: 20140711
  3. AZZALURE [Suspect]
     Active Substance: BOTULINUM TOXIN TYPE A
     Indication: PRODUCT USE ISSUE
  4. ALENDRONAT [Concomitant]
     Active Substance: ALENDRONATE SODIUM
     Indication: OSTEOPOROSIS PROPHYLAXIS
     Dosage: NOT REPORTED
     Route: 065
  5. RESTYLANE VITAL LIDOCAINE [Suspect]
     Active Substance: HYALURONIC ACID\LIDOCAINE
     Dosage: 0.2 ML
     Route: 065
  6. AZZALURE [Suspect]
     Active Substance: BOTULINUM TOXIN TYPE A
     Indication: SKIN WRINKLING
     Dosage: NOT REPORTED
     Route: 065
     Dates: start: 20140711, end: 20140711

REACTIONS (3)
  - Skin disorder [Not Recovered/Not Resolved]
  - Injection site mass [Not Recovered/Not Resolved]
  - Autoimmune disorder [Not Recovered/Not Resolved]

NARRATIVE: CASE EVENT DATE: 2014
